FAERS Safety Report 4341033-3 (Version None)
Quarter: 2004Q2

REPORT INFORMATION
  Report Type: 
  Country: None (occurrence: None)
  Receive Date: 20040413
  Receipt Date: 20040331
  Transmission Date: 20050107
  Serious: Yes (Life-Threatening, Hospitalization)
  Sender: FDA-Public Use
  Company Number: 2004JP000625

PATIENT
  Age: 50 Year
  Sex: Female
  Weight: 50 kg

DRUGS (24)
  1. PROTOPIC [Suspect]
     Indication: DERMATITIS ATOPIC
     Dosage: 0.10%, TOPICAL
     Route: 061
     Dates: start: 20020115, end: 20030601
  2. ANTEBATE (BETAMETHASONE BUTYRATE PROPIONATE) OINTMENT [Concomitant]
  3. SPIRAZON (PREDNISOLONE VALEROACETATE) OINTMENT [Concomitant]
  4. DERMOSOL (BETAMETHASONE VALERATE) LOTION [Concomitant]
  5. HIRUDOID (HEPARINOID) CREAM [Concomitant]
  6. BESOFTEN (HEPARINOID) LOTIN [Concomitant]
  7. GLYDIL (CLOBETASOL PROPIONATE) OINTMENT [Concomitant]
  8. PETROLATUM (PETROLATUM) [Concomitant]
  9. ZYRTEC [Concomitant]
  10. STADERM (IBUPROFEN PICONOL) CREAM [Concomitant]
  11. RESTAMIN (DIPHENHYDRAMINE) OINTMENT [Concomitant]
  12. CAMPHOR (CAMPHOR) LOTION [Concomitant]
  13. L-MENTHOL [Concomitant]
  14. METHYL SALICYLATE (METHYL SALICYLATE) [Concomitant]
  15. PEPPERMINT OIL (PEPPERMINT OIL) [Concomitant]
  16. EBASTEL (EBASTINE) TABLET [Concomitant]
  17. ATARAX [Concomitant]
  18. CLARITIN [Concomitant]
  19. ALESION (EPINASTINE HYDROCHLORIDE) TABLET [Concomitant]
  20. PERIACTIN (CYPROHEPTADINE HYDROCHLORIDE) TABLET [Concomitant]
  21. RINDERON (BETAMETHASONE) TABLET [Concomitant]
  22. NEOPHAGEN (GLYCYRRHIZINATE POTASSIUM) TABLET [Concomitant]
  23. CINAL (ASCORBIC ACID, CALCIUM PANTOTHENATE) TABLET [Concomitant]
  24. MUCOSTA (REBAMIPIDE) TABLET [Concomitant]

REACTIONS (1)
  - NON-HODGKIN'S LYMPHOMA [None]
